FAERS Safety Report 9475588 (Version 3)
Quarter: 2014Q1

REPORT INFORMATION
  Report Type: Spontaneous
  Country: US (occurrence: US)
  Receive Date: 20130826
  Receipt Date: 20140106
  Transmission Date: 20141002
  Serious: Yes (Hospitalization, Other)
  Sender: FDA-Public Use
  Company Number: US-BAYER-2013-102338

PATIENT
  Age: 21 Year
  Sex: Female
  Weight: 52.15 kg

DRUGS (2)
  1. MIRENA [Suspect]
     Indication: CONTRACEPTION
     Dosage: 20 MCG/24HR, CONT
     Route: 015
     Dates: start: 201110, end: 20120416
  2. CLINDAMYCIN [Concomitant]
     Dosage: UNK UNK, BID (TWICE DAY)

REACTIONS (9)
  - Uterine perforation [None]
  - Pregnancy with contraceptive device [None]
  - Abortion spontaneous [None]
  - Haemorrhage in pregnancy [None]
  - Injury [None]
  - Pain [None]
  - Emotional distress [None]
  - Drug ineffective [None]
  - Ovarian cyst [None]
